FAERS Safety Report 15245643 (Version 1)
Quarter: 2018Q3

REPORT INFORMATION
  Report Type: Spontaneous
  Country: FR (occurrence: FR)
  Receive Date: 20180806
  Receipt Date: 20180806
  Transmission Date: 20181010
  Serious: Yes (Other)
  Sender: FDA-Public Use
  Company Number: PHHY2018FR060500

PATIENT
  Age: 80 Year
  Sex: Male

DRUGS (3)
  1. METHOTREXATE. [Suspect]
     Active Substance: METHOTREXATE
     Indication: PEMPHIGOID
     Dosage: 10 MG, QW
     Route: 048
  2. CLOBETASOL [Suspect]
     Active Substance: CLOBETASOL
     Indication: PEMPHIGOID
     Dosage: 30 G, QD
     Route: 061
  3. CLOBETASOL [Suspect]
     Active Substance: CLOBETASOL
     Dosage: DECREASED DOSE
     Route: 061

REACTIONS (3)
  - Human herpesvirus 8 infection [Unknown]
  - Disease recurrence [Recovered/Resolved]
  - Kaposi^s sarcoma [Recovered/Resolved]
